FAERS Safety Report 7125493-0 (Version None)
Quarter: 2010Q4

REPORT INFORMATION
  Report Type: 
  Country: None (occurrence: None)
  Receive Date: 20101129
  Receipt Date: 20101124
  Transmission Date: 20110411
  Serious: Yes (Death, Hospitalization)
  Sender: FDA-Public Use
  Company Number: DE-ROCHE-739140

PATIENT
  Sex: Female

DRUGS (4)
  1. AVASTIN [Suspect]
     Dosage: PATIENT WAS ADMINISTERED SIX CYCLES.
     Route: 042
     Dates: start: 20100120, end: 20100501
  2. AVASTIN [Suspect]
     Dosage: SINCE MAY 2010 GIVEN AS MONOTHERAPY
     Route: 042
     Dates: start: 20100501, end: 20101101
  3. TAXOTERE [Concomitant]
     Dosage: PATIENT WAS ADMINISTERED SIX CYCLES.
     Dates: start: 20100120, end: 20100501
  4. BONDRONAT [Concomitant]
     Dates: start: 20100101

REACTIONS (3)
  - ASCITES [None]
  - LIVER INJURY [None]
  - TRANSAMINASES INCREASED [None]
